FAERS Safety Report 14242137 (Version 2)
Quarter: 2018Q1

REPORT INFORMATION
  Report Type: Spontaneous
  Country: FR (occurrence: FR)
  Receive Date: 20171201
  Receipt Date: 20180103
  Transmission Date: 20180508
  Serious: Yes (Other)
  Sender: FDA-Public Use
  Company Number: FR-MERCK KGAA-2036450

PATIENT
  Age: 64 Year
  Sex: Female

DRUGS (7)
  1. NOVOTHYROX [Suspect]
     Active Substance: LEVOTHYROXINE SODIUM
  2. NOVOTHYROX [Suspect]
     Active Substance: LEVOTHYROXINE SODIUM
     Indication: POST PROCEDURAL HYPOTHYROIDISM
     Dates: start: 2017, end: 201706
  3. NOVOTHYROX [Suspect]
     Active Substance: LEVOTHYROXINE SODIUM
     Dates: start: 201706
  4. NOVOTHYROX [Suspect]
     Active Substance: LEVOTHYROXINE SODIUM
  5. NOVOTHYROX [Suspect]
     Active Substance: LEVOTHYROXINE SODIUM
  6. NOVOTHYROX [Suspect]
     Active Substance: LEVOTHYROXINE SODIUM
  7. NOVOTHYROX [Suspect]
     Active Substance: LEVOTHYROXINE SODIUM

REACTIONS (12)
  - Abdominal distension [None]
  - Hypokinesia [None]
  - Blood thyroid stimulating hormone increased [Recovered/Resolved]
  - Headache [None]
  - Blood pressure abnormal [Recovered/Resolved]
  - Eye disorder [None]
  - Eating disorder [Recovered/Resolved]
  - Gait inability [None]
  - Oedema [Recovered/Resolved]
  - Heart rate irregular [Recovered/Resolved]
  - Blood thyroid stimulating hormone abnormal [None]
  - Gingival swelling [Recovered/Resolved]

NARRATIVE: CASE EVENT DATE: 2017
